FAERS Safety Report 4918672-1 (Version None)
Quarter: 2006Q1

REPORT INFORMATION
  Report Type: 
  Country: None (occurrence: None)
  Receive Date: 20060222
  Receipt Date: 20021216
  Transmission Date: 20060701
  Serious: Yes (Death, Life-Threatening, Hospitalization, Disabling)
  Sender: FDA-Public Use
  Company Number: 2002SE06284

PATIENT
  Age: 7537 Day
  Sex: Female
  Weight: 70 kg

DRUGS (16)
  1. DIPRIVAN [Suspect]
     Indication: SEDATION
     Dosage: 60 HOURS WITH 20-35 ML PER HOUR
     Route: 042
     Dates: start: 20021113, end: 20021117
  2. PROPOFOL [Suspect]
     Indication: SEDATION
     Dosage: 60 HOURS WITH 20-35 ML PER HOUR
     Route: 042
     Dates: start: 20021113, end: 20021117
  3. DICLOCIL [Concomitant]
  4. PENICILLIN [Concomitant]
  5. POTASSIUM CHLORIDE [Concomitant]
  6. KLEXANE [Concomitant]
  7. DIURAL [Concomitant]
  8. HALDID [Concomitant]
     Dosage: 100 MCR GRAM PER HOURS
  9. NORADRENALIN [Concomitant]
  10. DOPMIN [Concomitant]
  11. PANTOPRAZOLE SODIUM [Concomitant]
  12. PRIMPERAN TAB [Concomitant]
  13. CORDARONE [Concomitant]
  14. CALCIUM SANDOZ [Concomitant]
  15. LACTULOSE [Concomitant]
  16. LAXOBERAL [Concomitant]

REACTIONS (3)
  - CHROMATURIA [None]
  - PROPOFOL INFUSION SYNDROME [None]
  - VENTRICULAR TACHYCARDIA [None]
